FAERS Safety Report 11996053 (Version 1)
Quarter: 2016Q1

REPORT INFORMATION
  Report Type: Spontaneous
  Country: DE (occurrence: DE)
  Receive Date: 20160203
  Receipt Date: 20160203
  Transmission Date: 20160526
  Serious: Yes (Congenital Anomaly, Other)
  Sender: FDA-Public Use
  Company Number: DE-TEVA-630183GER

PATIENT
  Age: 1 Day
  Sex: Male

DRUGS (6)
  1. METAMIZOL [Concomitant]
     Active Substance: METAMIZOLE SODIUM
     Indication: HEADACHE
     Dosage: 500 MILLIGRAM DAILY;
     Route: 064
     Dates: start: 20140918, end: 20150615
  2. LYRICA [Concomitant]
     Active Substance: PREGABALIN
     Indication: ANXIETY DISORDER
     Dosage: 300 MILLIGRAM DAILY;
     Route: 064
  3. TAVOR (LORAZEPAM) [Concomitant]
     Active Substance: LORAZEPAM
     Indication: ANXIETY DISORDER
     Route: 064
     Dates: start: 20140918, end: 20150615
  4. FEMAFORM NATAL [Concomitant]
     Indication: PROPHYLAXIS OF NEURAL TUBE DEFECT
     Route: 064
  5. ASPIRIN. [Suspect]
     Active Substance: ASPIRIN
     Indication: ANXIETY DISORDER
     Dosage: 240 MG /DAY / DOSAGE REDUCTION TO 40MG/D STEP BY STEP
     Route: 064
     Dates: start: 20140918, end: 20150615
  6. ESCITALOPRAM [Suspect]
     Active Substance: ESCITALOPRAM OXALATE
     Indication: DEPRESSION
     Dosage: 10 MILLIGRAM DAILY;
     Route: 064
     Dates: start: 20140918, end: 20150615

REACTIONS (3)
  - Small for dates baby [Not Recovered/Not Resolved]
  - Hypospadias [Not Recovered/Not Resolved]
  - Foetal exposure during pregnancy [Unknown]

NARRATIVE: CASE EVENT DATE: 20150615
